FAERS Safety Report 10960419 (Version 1)
Quarter: 2015Q1

REPORT INFORMATION
  Report Type: Spontaneous
  Country: CA (occurrence: CA)
  Receive Date: 20150327
  Receipt Date: 20150327
  Transmission Date: 20150721
  Serious: Yes (Life-Threatening, Hospitalization, Disabling)
  Sender: FDA-Public Use
  Company Number: CA-TEVA-550644ACC

PATIENT
  Age: 20 Month
  Sex: Male
  Weight: 15 kg

DRUGS (2)
  1. MORPHINE [Suspect]
     Active Substance: MORPHINE
     Indication: POSTOPERATIVE ANALGESIA
  2. MORPHINE [Suspect]
     Active Substance: MORPHINE
     Indication: URETHRAL REPAIR
     Route: 048

REACTIONS (4)
  - Hypoxic-ischaemic encephalopathy [Not Recovered/Not Resolved]
  - Unresponsive to stimuli [Not Recovered/Not Resolved]
  - Hypoxia [Not Recovered/Not Resolved]
  - Bradypnoea [Not Recovered/Not Resolved]
